FAERS Safety Report 4660152-5 (Version None)
Quarter: 2005Q2

REPORT INFORMATION
  Report Type: 
  Country: None (occurrence: None)
  Receive Date: 20050427
  Receipt Date: 20050302
  Transmission Date: 20051028
  Serious: No
  Sender: FDA-Public Use
  Company Number: 212829

PATIENT
  Age: 44 Year
  Sex: Male
  Weight: 81.6 kg

DRUGS (4)
  1. XOLAIR [Suspect]
     Indication: ASTHMA
     Dosage: 150 MG, QW, SUBCUTANEOUS
     Route: 058
     Dates: start: 20040819, end: 20050113
  2. PREDNISONE [Concomitant]
  3. ADVAIR (SALMETEROL XINAFOATE, FLUTICASONE PROPIONATE) [Concomitant]
  4. HYDROCHLOROTHIAZIDE [Concomitant]

REACTIONS (2)
  - NASOPHARYNGITIS [None]
  - SINUSITIS [None]
